FAERS Safety Report 6244879-X (Version None)
Quarter: 2009Q2

REPORT INFORMATION
  Report Type: 
  Country: None (occurrence: None)
  Receive Date: 20090625
  Receipt Date: 20090616
  Transmission Date: 20091009
  Serious: Yes (Hospitalization)
  Sender: FDA-Public Use
  Company Number: B0576441A

PATIENT
  Sex: Male

DRUGS (18)
  1. REQUIP [Suspect]
     Indication: PARKINSON'S DISEASE
     Route: 048
     Dates: start: 20081124, end: 20090104
  2. REQUIP [Suspect]
     Dosage: 4MG THREE TIMES PER DAY
     Route: 048
     Dates: start: 20090105, end: 20090508
  3. PAXIL [Suspect]
     Indication: ANXIETY
     Dosage: 20MG PER DAY
     Route: 048
     Dates: start: 20090216, end: 20090427
  4. MENESIT [Suspect]
     Indication: DRUG USE FOR UNKNOWN INDICATION
     Route: 048
  5. MENESIT [Suspect]
     Indication: PARKINSON'S DISEASE
     Dosage: 100MG FOUR TIMES PER DAY
     Route: 048
  6. COMTAN [Suspect]
     Indication: PARKINSON'S DISEASE
     Dosage: 100MG SIX TIMES PER DAY
     Route: 048
     Dates: start: 20081105, end: 20090603
  7. COMTAN [Suspect]
     Indication: DRUG USE FOR UNKNOWN INDICATION
     Route: 048
  8. CABASER [Suspect]
     Indication: PARKINSON'S DISEASE
     Dosage: 1MG PER DAY
     Route: 048
     Dates: start: 20081113, end: 20090603
  9. DEPAS [Suspect]
     Indication: INSOMNIA
     Dosage: .5MG THREE TIMES PER DAY
     Route: 048
     Dates: start: 20081113, end: 20090506
  10. UNKNOWN MEDICATION [Concomitant]
     Indication: PARKINSON'S DISEASE
     Dosage: 100MG THREE TIMES PER DAY
     Route: 048
     Dates: start: 20071001
  11. EVIPROSTAT [Concomitant]
     Route: 048
  12. VESICARE [Concomitant]
     Route: 048
  13. GASMOTIN [Concomitant]
     Route: 048
  14. MAGMITT [Concomitant]
     Route: 048
  15. UNKNOWN MEDICATION [Concomitant]
     Route: 048
  16. UNKNOWN MEDICATION [Concomitant]
     Route: 062
  17. COMTAN [Concomitant]
     Route: 048
  18. COMTAN [Concomitant]
     Route: 048

REACTIONS (7)
  - ABNORMAL BEHAVIOUR [None]
  - AGITATION [None]
  - DELUSION [None]
  - HALLUCINATION [None]
  - PSYCHOMOTOR HYPERACTIVITY [None]
  - SELECTIVE MUTISM [None]
  - SEXUAL ACTIVITY INCREASED [None]
